FAERS Safety Report 19485739 (Version 1)
Quarter: 2021Q3

REPORT INFORMATION
  Report Type: Spontaneous
  Country: AU (occurrence: AU)
  Receive Date: 20210702
  Receipt Date: 20210702
  Transmission Date: 20211014
  Serious: Yes (Other)
  Sender: FDA-Public Use
  Company Number: AU-SA-2021SA215621

PATIENT
  Age: 53 Year
  Sex: Female

DRUGS (14)
  1. VALGANCICLOVIR. [Suspect]
     Active Substance: VALGANCICLOVIR
     Indication: CYTOMEGALOVIRUS INFECTION
  2. RUXOLITINIB [Suspect]
     Active Substance: RUXOLITINIB
  3. FLUDARABINE PHOSPHATE. [Suspect]
     Active Substance: FLUDARABINE PHOSPHATE
  4. TACROLIMUS. [Suspect]
     Active Substance: TACROLIMUS
  5. LETERMOVIR [Concomitant]
     Active Substance: LETERMOVIR
  6. METHYLPREDNISOLONE. [Suspect]
     Active Substance: METHYLPREDNISOLONE
  7. CICLOSPORIN [Suspect]
     Active Substance: CYCLOSPORINE
  8. THYMOGLOBULINE [Suspect]
     Active Substance: LAPINE T-LYMPHOCYTE IMMUNE GLOBULIN
  9. CIDOFOVIR. [Suspect]
     Active Substance: CIDOFOVIR
  10. MELPHALAN. [Suspect]
     Active Substance: MELPHALAN
  11. RITUXIMAB. [Suspect]
     Active Substance: RITUXIMAB
  12. GANCICLOVIR. [Suspect]
     Active Substance: GANCICLOVIR
  13. FOSCARNET SODIUM. [Suspect]
     Active Substance: FOSCARNET SODIUM
  14. METHOTREXATE. [Suspect]
     Active Substance: METHOTREXATE

REACTIONS (10)
  - Colitis [Unknown]
  - Dysuria [Unknown]
  - Cytomegalovirus infection reactivation [Unknown]
  - Epstein-Barr virus infection reactivation [Unknown]
  - Post transplant lymphoproliferative disorder [Unknown]
  - Treatment failure [Unknown]
  - Cystitis haemorrhagic [Unknown]
  - Gastrointestinal haemorrhage [Unknown]
  - Adenovirus infection [Unknown]
  - Cytomegalovirus infection [Unknown]
